FAERS Safety Report 21035961 (Version 1)
Quarter: 2022Q3

REPORT INFORMATION
  Report Type: Spontaneous
  Country: AT (occurrence: AT)
  Receive Date: 20220701
  Receipt Date: 20220701
  Transmission Date: 20221026
  Serious: Yes (Other)
  Sender: FDA-Public Use
  Company Number: AT-GLPHARMA-22.0550

PATIENT
  Sex: Female

DRUGS (1)
  1. ESZOPICLONE [Suspect]
     Active Substance: ESZOPICLONE
     Dosage: 3 MG FOR APPROXIMATELY 6 MONTHS
     Route: 048

REACTIONS (1)
  - Suicidal ideation [Recovering/Resolving]
